FAERS Safety Report 13103656 (Version 2)
Quarter: 2017Q1

REPORT INFORMATION
  Report Type: Spontaneous
  Country: CA (occurrence: CA)
  Receive Date: 20170111
  Receipt Date: 20170316
  Transmission Date: 20170428
  Serious: Yes (Other)
  Sender: FDA-Public Use
  Company Number: CA-ACCORD-047224

PATIENT
  Age: 63 Year
  Sex: Female

DRUGS (3)
  1. TRAMADOL/TRAMADOL HYDROCHLORIDE [Suspect]
     Active Substance: TRAMADOL HYDROCHLORIDE
     Indication: FIBROMYALGIA
  2. LITHIUM. [Concomitant]
     Active Substance: LITHIUM
     Indication: BIPOLAR II DISORDER
  3. QUETIAPINE/QUETIAPINE FUMARATE [Concomitant]
     Indication: BIPOLAR II DISORDER

REACTIONS (2)
  - Hypomania [Recovered/Resolved]
  - Serotonin syndrome [Recovered/Resolved]
